FAERS Safety Report 18870071 (Version 1)
Quarter: 2021Q1

REPORT INFORMATION
  Report Type: Spontaneous
  Country: US (occurrence: US)
  Receive Date: 20210210
  Receipt Date: 20210210
  Transmission Date: 20210420
  Serious: Yes (Hospitalization)
  Sender: FDA-Public Use
  Company Number: US-LUPIN PHARMACEUTICALS INC.-2021-01331

PATIENT
  Age: 14 Year
  Sex: Male

DRUGS (3)
  1. MORPHINE [Suspect]
     Active Substance: MORPHINE
     Indication: PORPHYRIA ACUTE
     Dosage: UNK, SUBCUTANEOUSLY OR INTRAVENOUS
     Route: 050
  2. PROMETHAZINE [Suspect]
     Active Substance: PROMETHAZINE HYDROCHLORIDE
     Indication: PORPHYRIA ACUTE
     Dosage: UNK, INTRAMUSCULAR OR PERORAL
     Route: 050
  3. GLUCOSE [Suspect]
     Active Substance: DEXTROSE
     Indication: PORPHYRIA ACUTE
     Dosage: 1 LITER, TID (10% GLUCOSE)
     Route: 042

REACTIONS (2)
  - Drug ineffective for unapproved indication [Unknown]
  - Off label use [Unknown]
